FAERS Safety Report 5217654-2 (Version None)
Quarter: 2006Q4

REPORT INFORMATION
  Report Type: 
  Country: None (occurrence: None)
  Receive Date: 20061130
  Receipt Date: 20060823
  Transmission Date: 20070319
  Serious: Yes (Other)
  Sender: FDA-Public Use
  Company Number: US200511001103

PATIENT
  Age: 54 Year
  Sex: Male
  Weight: 83.9 kg

DRUGS (10)
  1. ZYPREXA [Suspect]
     Indication: SCHIZOPHRENIA
     Dosage: SEE IMAGE
     Route: 048
     Dates: end: 20050801
  2. ZYPREXA [Suspect]
     Indication: SCHIZOPHRENIA
     Dosage: SEE IMAGE
     Route: 048
     Dates: start: 19991001
  3. ZYPREXA [Suspect]
     Indication: SCHIZOPHRENIA
     Dosage: SEE IMAGE
     Route: 048
     Dates: start: 20050701
  4. HALDOL DECANOATE (HALOPERIDOL DECANOATE) [Concomitant]
  5. GEODON [Concomitant]
  6. DEPAKOTE [Concomitant]
  7. ARIPIPRAZOLE [Concomitant]
  8. CARBAMAZEPINE [Concomitant]
  9. IMIPRAMINE [Concomitant]
  10. INDERAL [Concomitant]

REACTIONS (2)
  - DIABETES MELLITUS NON-INSULIN-DEPENDENT [None]
  - WEIGHT INCREASED [None]
